FAERS Safety Report 4561512-3 (Version None)
Quarter: 2005Q1

REPORT INFORMATION
  Report Type: 
  Country: None (occurrence: None)
  Receive Date: 20050121
  Receipt Date: 20050107
  Transmission Date: 20050727
  Serious: No
  Sender: FDA-Public Use
  Company Number: 203328

PATIENT
  Age: 48 Year
  Sex: Male
  Weight: 75 kg

DRUGS (5)
  1. RITUXAN [Suspect]
     Indication: HIV INFECTION CDC GROUP IV SUBGROUP D
     Dosage: 375  MG/M2, Q28D, INTRAVENOUS
     Route: 042
     Dates: start: 20001016, end: 20001220
  2. CYCLOPHOSPHAMIDE [Suspect]
     Indication: HIV INFECTION CDC GROUP IV SUBGROUP D
     Dosage: 750 MG/M2, INTRAVENOUS
     Route: 042
     Dates: start: 20001016
  3. DOXORUBICIN HCL [Suspect]
     Indication: HIV INFECTION CDC GROUP IV SUBGROUP D
     Dosage: 50 MG/M2, IV BOLUS
     Route: 040
     Dates: start: 20001016
  4. VINCRISTINE [Suspect]
     Indication: HIV INFECTION CDC GROUP IV SUBGROUP D
     Dosage: 1.4 MG/M2M IV BOLUS
     Route: 040
     Dates: start: 20001016
  5. PREDNISONE [Suspect]
     Indication: HIV INFECTION CDC GROUP IV SUBGROUP D
     Dosage: 100 MG, QDX5D/21DC, ORAL
     Route: 048
     Dates: start: 20001016

REACTIONS (5)
  - BLOOD IMMUNOGLOBULIN A DECREASED [None]
  - BLOOD IMMUNOGLOBULIN G DECREASED [None]
  - BLOOD IMMUNOGLOBULIN M DECREASED [None]
  - CD4 LYMPHOCYTES DECREASED [None]
  - HYPOGAMMAGLOBULINAEMIA [None]
